FAERS Safety Report 7166245-5 (Version None)
Quarter: 2010Q4

REPORT INFORMATION
  Report Type: 
  Country: None (occurrence: None)
  Receive Date: 20101216
  Receipt Date: 20101208
  Transmission Date: 20110411
  Serious: Yes (Death)
  Sender: FDA-Public Use
  Company Number: TW-CELGENEUS-153-C5013-10120759

PATIENT
  Sex: Male
  Weight: 56.2 kg

DRUGS (232)
  1. CC-5013 [Suspect]
     Indication: MULTIPLE MYELOMA
     Route: 048
     Dates: start: 20101116, end: 20101207
  2. DEXAMETHASONE [Suspect]
     Indication: MULTIPLE MYELOMA
     Route: 065
     Dates: start: 20101116, end: 20101207
  3. DULCOLAX [Concomitant]
     Route: 048
     Dates: start: 20101022, end: 20101122
  4. ULTRACET [Concomitant]
     Route: 048
     Dates: start: 20101022, end: 20101113
  5. ULTRACET [Concomitant]
     Route: 048
     Dates: start: 20101113, end: 20101124
  6. ULTRACET [Concomitant]
     Route: 065
     Dates: start: 20101124, end: 20101124
  7. ZINC OXIDE [Concomitant]
     Route: 062
     Dates: start: 20101022, end: 20101112
  8. ZINC OXIDE [Concomitant]
     Route: 062
     Dates: start: 20101201
  9. NOVONORM [Concomitant]
     Route: 048
     Dates: start: 20101022, end: 20101122
  10. BONEFOS [Concomitant]
     Route: 048
     Dates: start: 20101025, end: 20101124
  11. BONEFOS [Concomitant]
     Route: 065
     Dates: start: 20101124, end: 20101124
  12. PRIMPERAN TAB [Concomitant]
     Route: 048
     Dates: start: 20101101, end: 20101101
  13. PRIMPERAN TAB [Concomitant]
     Route: 051
     Dates: start: 20101122, end: 20101124
  14. PRIMPERAN TAB [Concomitant]
     Route: 051
     Dates: start: 20101122, end: 20101123
  15. PRIMPERAN TAB [Concomitant]
     Route: 051
     Dates: start: 20101128, end: 20101201
  16. PRIMPERAN TAB [Concomitant]
     Route: 051
     Dates: start: 20101201, end: 20101201
  17. NINCORT [Concomitant]
     Route: 065
     Dates: start: 20101101, end: 20101112
  18. SCANOL [Concomitant]
     Route: 048
     Dates: start: 20101106, end: 20101117
  19. SCANOL [Concomitant]
     Route: 048
     Dates: start: 20101120, end: 20101124
  20. SCANOL [Concomitant]
     Route: 065
     Dates: start: 20101124, end: 20101207
  21. SCANOL [Concomitant]
     Route: 065
     Dates: start: 20101124, end: 20101207
  22. AUGMENTIN [Concomitant]
     Route: 051
     Dates: start: 20101106, end: 20101115
  23. AUGMENTIN [Concomitant]
     Route: 051
     Dates: start: 20101116, end: 20101117
  24. AUGMENTIN [Concomitant]
     Route: 051
     Dates: start: 20101117, end: 20101117
  25. AUGMENTIN [Concomitant]
     Route: 051
     Dates: start: 20101117, end: 20101117
  26. MEGESTROL ACETATE [Concomitant]
     Route: 048
     Dates: start: 20101108, end: 20101124
  27. MEGESTROL ACETATE [Concomitant]
     Route: 065
     Dates: start: 20101124, end: 20101124
  28. TRANSAMIN [Concomitant]
     Route: 051
     Dates: start: 20101108, end: 20101110
  29. TRANSAMIN [Concomitant]
     Route: 051
     Dates: start: 20101203, end: 20101206
  30. SODIUM CHLORIDE [Concomitant]
     Route: 041
     Dates: start: 20101110, end: 20101112
  31. POTASSIUM CHLORIDE [Concomitant]
     Route: 051
     Dates: start: 20101110, end: 20101112
  32. POTASSIUM CHLORIDE [Concomitant]
     Route: 051
     Dates: start: 20101112, end: 20101117
  33. POTASSIUM CHLORIDE [Concomitant]
     Route: 051
     Dates: start: 20101128, end: 20101129
  34. POTASSIUM CHLORIDE [Concomitant]
     Route: 051
     Dates: start: 20101201, end: 20101202
  35. POTASSIUM CHLORIDE [Concomitant]
     Route: 051
     Dates: start: 20101201, end: 20101201
  36. POTASSIUM CHLORIDE [Concomitant]
     Route: 051
     Dates: start: 20101201, end: 20101202
  37. POTASSIUM CHLORIDE [Concomitant]
     Route: 051
     Dates: start: 20101201, end: 20101202
  38. POTASSIUM CHLORIDE [Concomitant]
     Route: 051
     Dates: start: 20101202, end: 20101202
  39. POTASSIUM CHLORIDE [Concomitant]
     Route: 051
     Dates: start: 20101202, end: 20101202
  40. POTASSIUM CHLORIDE [Concomitant]
     Route: 051
     Dates: start: 20101202, end: 20101203
  41. POTASSIUM CHLORIDE [Concomitant]
     Route: 051
     Dates: start: 20101203, end: 20101204
  42. POTASSIUM CHLORIDE [Concomitant]
     Route: 051
     Dates: start: 20101204, end: 20101204
  43. POTASSIUM CHLORIDE [Concomitant]
     Route: 051
     Dates: start: 20101204, end: 20101204
  44. POTASSIUM CHLORIDE [Concomitant]
     Route: 051
     Dates: start: 20101204, end: 20101205
  45. ATIVAN [Concomitant]
     Route: 048
     Dates: start: 20101110, end: 20101111
  46. STILNOX [Concomitant]
     Route: 048
     Dates: start: 20101111, end: 20101113
  47. NORVASC [Concomitant]
     Route: 048
     Dates: start: 20101111, end: 20101124
  48. NORVASC [Concomitant]
     Route: 065
     Dates: start: 20101130, end: 20101201
  49. SEROQUEL [Concomitant]
     Route: 048
     Dates: start: 20101113, end: 20101115
  50. SEROQUEL [Concomitant]
     Route: 065
     Dates: start: 20101127, end: 20101127
  51. TRAMADOL HCL [Concomitant]
     Route: 051
     Dates: start: 20101113, end: 20101124
  52. TRAMADOL HCL [Concomitant]
     Route: 065
     Dates: start: 20101128
  53. ALLERMIN [Concomitant]
     Route: 051
     Dates: start: 20101115, end: 20101116
  54. ALLERMIN [Concomitant]
     Route: 051
     Dates: start: 20101123, end: 20101124
  55. ALLERMIN [Concomitant]
     Route: 051
     Dates: start: 20101124, end: 20101125
  56. ALLERMIN [Concomitant]
     Route: 051
     Dates: start: 20101125, end: 20101126
  57. ALLERMIN [Concomitant]
     Route: 051
     Dates: start: 20101125, end: 20101126
  58. ALLERMIN [Concomitant]
     Route: 051
     Dates: start: 20101125, end: 20101126
  59. ALLERMIN [Concomitant]
     Route: 051
     Dates: start: 20101126, end: 20101127
  60. ALLERMIN [Concomitant]
     Route: 051
     Dates: start: 20101127, end: 20101128
  61. ALLERMIN [Concomitant]
     Route: 051
     Dates: start: 20101128, end: 20101129
  62. ALLERMIN [Concomitant]
     Route: 051
     Dates: start: 20101129, end: 20101130
  63. ALLERMIN [Concomitant]
     Route: 051
     Dates: start: 20101202, end: 20101203
  64. ALLERMIN [Concomitant]
     Route: 051
     Dates: start: 20101203, end: 20101204
  65. ALLERMIN [Concomitant]
     Route: 051
     Dates: start: 20101204, end: 20101205
  66. ALLERMIN [Concomitant]
     Route: 051
     Dates: start: 20101205, end: 20101206
  67. GLYCAL-AMIN [Concomitant]
     Route: 041
     Dates: start: 20101116, end: 20101118
  68. GLYCAL-AMIN [Concomitant]
     Route: 041
     Dates: start: 20101116, end: 20101116
  69. GLYCAL-AMIN [Concomitant]
     Route: 041
     Dates: start: 20101116, end: 20101117
  70. GLYCAL-AMIN [Concomitant]
     Route: 041
     Dates: start: 20101118, end: 20101123
  71. SMOFLIPID [Concomitant]
     Route: 041
     Dates: start: 20101116, end: 20101118
  72. SMOFLIPID [Concomitant]
     Route: 041
     Dates: start: 20101116, end: 20101117
  73. SMOFLIPID [Concomitant]
     Route: 041
     Dates: start: 20101118, end: 20101123
  74. SMOFLIPID [Concomitant]
     Route: 041
     Dates: start: 20101125, end: 20101125
  75. SMOFLIPID [Concomitant]
     Route: 041
     Dates: start: 20101201, end: 20101204
  76. SMOFLIPID [Concomitant]
     Route: 041
     Dates: start: 20101201, end: 20101202
  77. ASPIRIN [Concomitant]
     Route: 048
     Dates: start: 20101116, end: 20101123
  78. PISUTAM [Concomitant]
     Route: 051
     Dates: start: 20101117, end: 20101118
  79. PISUTAM [Concomitant]
     Route: 051
     Dates: start: 20101117, end: 20101124
  80. NAPROXEN [Concomitant]
     Route: 048
     Dates: start: 20101120, end: 20101121
  81. LASIX [Concomitant]
     Route: 051
     Dates: start: 20101120, end: 20101121
  82. LASIX [Concomitant]
     Route: 051
     Dates: start: 20101123, end: 20101124
  83. LASIX [Concomitant]
     Route: 051
     Dates: start: 20101123, end: 20101124
  84. LASIX [Concomitant]
     Route: 051
     Dates: start: 20101124, end: 20101124
  85. LASIX [Concomitant]
     Route: 051
     Dates: start: 20101124, end: 20101124
  86. COMBIVENT [Concomitant]
     Route: 055
     Dates: start: 20101123, end: 20101124
  87. COMBIVENT [Concomitant]
     Route: 055
     Dates: start: 20101123, end: 20101124
  88. COMBIVENT [Concomitant]
     Route: 055
     Dates: start: 20101125, end: 20101207
  89. MEROPENEM [Concomitant]
     Route: 051
     Dates: start: 20101124, end: 20101125
  90. MEROPENEM [Concomitant]
     Route: 051
     Dates: start: 20101124, end: 20101128
  91. MEROPENEM [Concomitant]
     Route: 051
     Dates: start: 20101201, end: 20101202
  92. MEROPENEM [Concomitant]
     Route: 051
     Dates: start: 20101201, end: 20101201
  93. MEROPENEM [Concomitant]
     Route: 051
     Dates: start: 20101201
  94. TEICOPLANIN [Concomitant]
     Indication: PNEUMONIA
     Route: 051
     Dates: start: 20101124, end: 20101125
  95. TEICOPLANIN [Concomitant]
     Route: 051
     Dates: start: 20101124, end: 20101203
  96. TEICOPLANIN [Concomitant]
     Route: 051
     Dates: start: 20101124, end: 20101125
  97. CALGLON [Concomitant]
     Route: 051
     Dates: start: 20101124, end: 20101125
  98. CALGLON [Concomitant]
     Route: 051
     Dates: start: 20101124, end: 20101125
  99. BICARBONA [Concomitant]
     Route: 051
     Dates: start: 20101124, end: 20101124
  100. BICARBONA [Concomitant]
     Route: 051
     Dates: start: 20101124, end: 20101124
  101. BICARBONA [Concomitant]
     Route: 051
     Dates: start: 20101124, end: 20101124
  102. MORPHINE HCL ELIXIR [Concomitant]
     Route: 051
     Dates: start: 20101124, end: 20101125
  103. MORPHINE HCL ELIXIR [Concomitant]
     Route: 051
     Dates: start: 20101125, end: 20101126
  104. MORPHINE HCL ELIXIR [Concomitant]
     Route: 051
     Dates: start: 20101125, end: 20101128
  105. MORPHINE HCL ELIXIR [Concomitant]
     Route: 051
     Dates: start: 20101125, end: 20101126
  106. MORPHINE HCL ELIXIR [Concomitant]
     Route: 051
     Dates: start: 20101130, end: 20101201
  107. MORPHINE HCL ELIXIR [Concomitant]
     Route: 065
     Dates: start: 20101130, end: 20101204
  108. MANNITOL [Concomitant]
     Route: 041
     Dates: start: 20101124, end: 20101125
  109. MANNITOL [Concomitant]
     Route: 041
     Dates: start: 20101125, end: 20101126
  110. MANNITOL [Concomitant]
     Route: 041
     Dates: start: 20101126, end: 20101127
  111. ESTROMON [Concomitant]
     Route: 065
     Dates: start: 20101124, end: 20101129
  112. ESTROMON [Concomitant]
     Route: 048
     Dates: start: 20101124, end: 20101125
  113. HUMULIN R [Concomitant]
     Route: 058
     Dates: start: 20101124, end: 20101125
  114. HUMULIN R [Concomitant]
     Route: 051
     Dates: start: 20101124, end: 20101125
  115. HUMULIN R [Concomitant]
     Route: 051
     Dates: start: 20101125, end: 20101125
  116. HUMULIN R [Concomitant]
     Route: 051
     Dates: start: 20101125, end: 20101126
  117. HUMULIN R [Concomitant]
     Route: 051
     Dates: start: 20101125, end: 20101126
  118. HUMULIN R [Concomitant]
     Route: 058
     Dates: start: 20101125, end: 20101126
  119. HUMULIN R [Concomitant]
     Route: 051
     Dates: start: 20101126, end: 20101129
  120. HUMULIN R [Concomitant]
     Route: 051
     Dates: start: 20101129, end: 20101201
  121. HUMULIN R [Concomitant]
     Route: 051
     Dates: start: 20101201, end: 20101201
  122. HUMULIN R [Concomitant]
     Route: 051
     Dates: start: 20101201, end: 20101202
  123. HUMULIN R [Concomitant]
     Route: 058
     Dates: start: 20101201, end: 20101202
  124. HUMULIN R [Concomitant]
     Route: 051
     Dates: start: 20101202, end: 20101203
  125. HUMULIN R [Concomitant]
     Route: 051
     Dates: start: 20101203, end: 20101204
  126. HUMULIN R [Concomitant]
     Route: 051
     Dates: start: 20101204, end: 20101204
  127. HUMULIN R [Concomitant]
     Route: 058
     Dates: start: 20101205, end: 20101206
  128. HUMULIN R [Concomitant]
     Route: 051
     Dates: start: 20101206
  129. HUMULIN R [Concomitant]
     Route: 051
     Dates: start: 20101206, end: 20101206
  130. HUMULIN R [Concomitant]
     Route: 051
     Dates: start: 20101206, end: 20101206
  131. HUMULIN R [Concomitant]
     Route: 051
     Dates: start: 20101206
  132. HUMULIN R [Concomitant]
     Route: 058
     Dates: start: 20101206
  133. DORMICUM [Concomitant]
     Route: 051
     Dates: start: 20101124, end: 20101125
  134. DORMICUM [Concomitant]
     Route: 051
     Dates: start: 20101124, end: 20101125
  135. DORMICUM [Concomitant]
     Route: 051
     Dates: start: 20101125, end: 20101125
  136. DORMICUM [Concomitant]
     Route: 051
     Dates: start: 20101125, end: 20101125
  137. DORMICUM [Concomitant]
     Route: 051
     Dates: start: 20101125, end: 20101125
  138. DORMICUM [Concomitant]
     Route: 051
     Dates: start: 20101125, end: 20101127
  139. DORMICUM [Concomitant]
     Route: 051
     Dates: start: 20101127, end: 20101129
  140. DORMICUM [Concomitant]
     Route: 051
     Dates: start: 20101201, end: 20101202
  141. DORMICUM [Concomitant]
     Route: 051
     Dates: start: 20101203, end: 20101204
  142. DORMICUM [Concomitant]
     Route: 051
     Dates: start: 20101203, end: 20101204
  143. DORMICUM [Concomitant]
     Route: 051
     Dates: start: 20101204, end: 20101204
  144. DORMICUM [Concomitant]
     Route: 051
     Dates: start: 20101204, end: 20101204
  145. DORMICUM [Concomitant]
     Route: 051
     Dates: start: 20101204, end: 20101205
  146. DORMICUM [Concomitant]
     Route: 051
     Dates: start: 20101205, end: 20101206
  147. DORMICUM [Concomitant]
     Route: 051
     Dates: start: 20101206
  148. LEVOPHED [Concomitant]
     Route: 051
     Dates: start: 20101124, end: 20101125
  149. LEVOPHED [Concomitant]
     Route: 051
     Dates: start: 20101126, end: 20101127
  150. LEVOPHED [Concomitant]
     Route: 051
     Dates: start: 20101129, end: 20101130
  151. LEVOPHED [Concomitant]
     Route: 051
     Dates: start: 20101201, end: 20101202
  152. LEVOPHED [Concomitant]
     Route: 051
     Dates: start: 20101202, end: 20101202
  153. LEVOPHED [Concomitant]
     Route: 051
     Dates: start: 20101202, end: 20101203
  154. LEVOPHED [Concomitant]
     Route: 051
     Dates: start: 20101202, end: 20101205
  155. LEVOPHED [Concomitant]
     Route: 051
     Dates: start: 20101205
  156. DDAVP [Concomitant]
     Route: 051
     Dates: start: 20101124, end: 20101125
  157. NS [Concomitant]
     Route: 041
     Dates: start: 20101124, end: 20101125
  158. NS [Concomitant]
     Route: 041
     Dates: start: 20101124, end: 20101125
  159. HEPARIN [Concomitant]
     Route: 051
     Dates: start: 20101124, end: 20101125
  160. HEPARIN [Concomitant]
     Route: 051
     Dates: start: 20101125, end: 20101201
  161. HEPARIN [Concomitant]
     Route: 051
     Dates: start: 20101126, end: 20101130
  162. HEPARIN [Concomitant]
     Route: 051
     Dates: start: 20101206
  163. NEXIUM [Concomitant]
     Route: 051
     Dates: start: 20101125, end: 20101125
  164. NEXIUM [Concomitant]
     Route: 051
     Dates: start: 20101125, end: 20101127
  165. NEXIUM [Concomitant]
     Route: 065
     Dates: start: 20101127
  166. DEXTROSE [Concomitant]
     Route: 041
     Dates: start: 20101125, end: 20101125
  167. DEXTROSE [Concomitant]
     Route: 041
     Dates: start: 20101125, end: 20101126
  168. DEXTROSE [Concomitant]
     Route: 041
     Dates: start: 20101125, end: 20101126
  169. DEXTROSE [Concomitant]
     Route: 041
     Dates: start: 20101125, end: 20101126
  170. DEXTROSE [Concomitant]
     Route: 041
     Dates: start: 20101126, end: 20101207
  171. DEXTROSE [Concomitant]
     Route: 041
     Dates: start: 20101201, end: 20101202
  172. DEXTROSE [Concomitant]
     Route: 041
     Dates: start: 20101201, end: 20101202
  173. DEXTROSE [Concomitant]
     Route: 041
     Dates: start: 20101201, end: 20101202
  174. DEXTROSE [Concomitant]
     Route: 041
     Dates: start: 20101204, end: 20101205
  175. DEXTROSE [Concomitant]
     Route: 041
     Dates: start: 20101204, end: 20101205
  176. DEXTROSE [Concomitant]
     Route: 041
     Dates: start: 20101204, end: 20101205
  177. CALCIUM GLUCONATE [Concomitant]
     Route: 051
     Dates: start: 20101125, end: 20101125
  178. AMIYU [Concomitant]
     Route: 041
     Dates: start: 20101125, end: 20101127
  179. AMIYU [Concomitant]
     Route: 041
     Dates: start: 20101125, end: 20101130
  180. AMIYU [Concomitant]
     Route: 041
     Dates: start: 20101130, end: 20101202
  181. AMIYU [Concomitant]
     Route: 041
     Dates: start: 20101202
  182. DUASMA [Concomitant]
     Route: 055
     Dates: start: 20101125, end: 20101207
  183. TRAMAL [Concomitant]
     Route: 051
     Dates: start: 20101125, end: 20101125
  184. TRAMAL [Concomitant]
     Route: 051
     Dates: start: 20101125, end: 20101126
  185. HERBESSER [Concomitant]
     Route: 051
     Dates: start: 20101125, end: 20101126
  186. HERBESSER [Concomitant]
     Route: 065
     Dates: start: 20101127, end: 20101128
  187. HERBESSER [Concomitant]
     Route: 065
     Dates: start: 20101127, end: 20101127
  188. HERBESSER [Concomitant]
     Route: 065
     Dates: start: 20101128, end: 20101128
  189. HERBESSER [Concomitant]
     Route: 065
     Dates: start: 20101130, end: 20101201
  190. HERBESSER [Concomitant]
     Route: 051
     Dates: start: 20101201, end: 20101202
  191. HERBESSER [Concomitant]
     Route: 051
     Dates: start: 20101206, end: 20101206
  192. HYDROCORTISONE [Concomitant]
     Indication: BRONCHOSPASM
     Route: 051
     Dates: start: 20101125, end: 20101126
  193. HYDROCORTISONE [Concomitant]
     Route: 051
     Dates: start: 20101126, end: 20101127
  194. HYDROCORTISONE [Concomitant]
     Route: 051
     Dates: start: 20101127, end: 20101128
  195. HYDROCORTISONE [Concomitant]
     Route: 051
     Dates: start: 20101128, end: 20101129
  196. HYDROCORTISONE [Concomitant]
     Route: 051
     Dates: start: 20101129, end: 20101130
  197. HYDROCORTISONE [Concomitant]
     Route: 051
     Dates: start: 20101202, end: 20101203
  198. HYDROCORTISONE [Concomitant]
     Route: 051
     Dates: start: 20101203, end: 20101204
  199. HYDROCORTISONE [Concomitant]
     Route: 051
     Dates: start: 20101203, end: 20101204
  200. HIRUDOID [Concomitant]
     Route: 062
     Dates: start: 20101126, end: 20101207
  201. CEFTAZIDIME [Concomitant]
     Indication: PNEUMONIA
     Route: 051
     Dates: start: 20101128, end: 20101201
  202. LACTUL [Concomitant]
     Route: 065
     Dates: start: 20101129, end: 20101201
  203. LACTUL [Concomitant]
     Route: 065
     Dates: start: 20101201, end: 20101203
  204. EVAC ENEMA [Concomitant]
     Route: 054
     Dates: start: 20101129
  205. SENOKOT [Concomitant]
     Route: 065
     Dates: start: 20101130, end: 20101130
  206. MOSAPRIDE CITRATE [Concomitant]
     Route: 065
     Dates: start: 20101130, end: 20101201
  207. MOPRIDE FC [Concomitant]
     Route: 065
     Dates: start: 20101201, end: 20101201
  208. TIGECYCLINE [Concomitant]
     Route: 051
     Dates: start: 20101201, end: 20101202
  209. TIGECYCLINE [Concomitant]
     Route: 051
     Dates: start: 20101201
  210. DEXTROSE 5% [Concomitant]
     Route: 041
     Dates: start: 20101201, end: 20101202
  211. DEXTROSE 5% [Concomitant]
     Route: 041
     Dates: start: 20101202, end: 20101202
  212. DEXTROSE 5% [Concomitant]
     Route: 041
     Dates: start: 20101207, end: 20101207
  213. ERYTHROCIN LACTOBIONATE [Concomitant]
     Route: 051
     Dates: start: 20101201
  214. ROLIKAN [Concomitant]
     Route: 041
     Dates: start: 20101202, end: 20101203
  215. ROLIKAN [Concomitant]
     Route: 041
     Dates: start: 20101203, end: 20101205
  216. SODIUM BICARBONATE [Concomitant]
     Route: 051
     Dates: start: 20101202, end: 20101203
  217. CALOWLIN [Concomitant]
     Route: 048
     Dates: start: 20101202, end: 20101202
  218. CALOWLIN [Concomitant]
     Route: 065
     Dates: start: 20101202, end: 20101205
  219. CALOWLIN [Concomitant]
     Route: 065
     Dates: start: 20101205
  220. POTASSIUM PHOSPHATES [Concomitant]
     Route: 051
     Dates: start: 20101203, end: 20101204
  221. POTASSIUM PHOSPHATES [Concomitant]
     Route: 051
     Dates: start: 20101204, end: 20101205
  222. POTASSIUM PHOSPHATES [Concomitant]
     Route: 051
     Dates: start: 20101205, end: 20101205
  223. METRONIDAZOLE [Concomitant]
     Route: 048
     Dates: start: 20101203, end: 20101203
  224. EPINEPHRINE [Concomitant]
     Route: 055
     Dates: start: 20101203, end: 20101206
  225. EPINEPHRINE [Concomitant]
     Route: 051
     Dates: start: 20101207, end: 20101207
  226. EPINEPHRINE [Concomitant]
     Route: 051
     Dates: start: 20101207, end: 20101207
  227. EPINEPHRINE [Concomitant]
     Route: 051
     Dates: start: 20101207, end: 20101207
  228. KAOPEETIN [Concomitant]
     Route: 065
     Dates: start: 20101203, end: 20101206
  229. LIPOFUNDIN [Concomitant]
     Route: 041
     Dates: start: 20101204
  230. METHYLPREDNISOLONE [Concomitant]
     Route: 051
     Dates: start: 20101204
  231. METHYLPREDNISOLONE [Concomitant]
     Route: 051
     Dates: start: 20101205, end: 20101206
  232. DIGOXIN [Concomitant]
     Route: 041
     Dates: start: 20101206

REACTIONS (1)
  - SEPTIC SHOCK [None]
